FAERS Safety Report 21846858 (Version 1)
Quarter: 2023Q1

REPORT INFORMATION
  Report Type: Spontaneous
  Country: US (occurrence: None)
  Receive Date: 20230110
  Receipt Date: 20230110
  Transmission Date: 20230418
  Serious: Yes (Hospitalization)
  Sender: FDA-Public Use
  Company Number: None

PATIENT
  Age: 21 Year
  Sex: Male
  Weight: 75.5 kg

DRUGS (9)
  1. CYCLOPHOSPHAMIDE [Suspect]
     Active Substance: CYCLOPHOSPHAMIDE
     Dates: end: 20220815
  2. CYTARABINE [Suspect]
     Active Substance: CYTARABINE
     Dates: end: 20220809
  3. DEXAMETHASONE [Suspect]
     Active Substance: DEXAMETHASONE
     Dates: end: 20221227
  4. DOXORUBICIN HYDROCHLORIDE [Suspect]
     Active Substance: DOXORUBICIN HYDROCHLORIDE
     Dates: end: 20221220
  5. MERCAPTOPURINE [Suspect]
     Active Substance: MERCAPTOPURINE
     Dates: end: 20221127
  6. METHOTREXATE [Suspect]
     Active Substance: METHOTREXATE
     Dates: end: 20221206
  7. PEGASPARGASE [Suspect]
     Active Substance: PEGASPARGASE
     Dates: end: 20221209
  8. GLEEVEC [Suspect]
     Active Substance: IMATINIB MESYLATE
     Dates: end: 20221227
  9. VINCRISTINE SULFATE [Suspect]
     Active Substance: VINCRISTINE SULFATE
     Dates: end: 20221220

REACTIONS (35)
  - Treatment delayed [None]
  - Septic shock [None]
  - Disseminated intravascular coagulation [None]
  - Nausea [None]
  - Haematemesis [None]
  - Asthenia [None]
  - Abdominal pain [None]
  - Palpitations [None]
  - Dizziness [None]
  - Syncope [None]
  - Face injury [None]
  - Mouth haemorrhage [None]
  - Malaise [None]
  - Pain in extremity [None]
  - Hypotension [None]
  - Tachycardia [None]
  - Myelosuppression [None]
  - Hyperkalaemia [None]
  - Carbon dioxide decreased [None]
  - Blood glucose increased [None]
  - Aspartate aminotransferase increased [None]
  - Alanine aminotransferase increased [None]
  - Lactic acidosis [None]
  - Troponin increased [None]
  - Stress [None]
  - Shock [None]
  - Sinus tachycardia [None]
  - Activated partial thromboplastin time prolonged [None]
  - Blood fibrinogen decreased [None]
  - Haematochezia [None]
  - Gastritis [None]
  - Escherichia infection [None]
  - Pneumonia klebsiella [None]
  - Pulmonary oedema [None]
  - Pain in extremity [None]

NARRATIVE: CASE EVENT DATE: 20221227
